FAERS Safety Report 11308023 (Version 1)
Quarter: 2015Q3

REPORT INFORMATION
  Report Type: Spontaneous
  Country: US (occurrence: US)
  Receive Date: 20150724
  Receipt Date: 20150724
  Transmission Date: 20151125
  Serious: Yes (Other)
  Sender: FDA-Public Use
  Company Number: US-HOSPIRA-2951442

PATIENT
  Age: 22 Year
  Sex: Male

DRUGS (3)
  1. SODIUM CHLORIDE. [Concomitant]
     Active Substance: SODIUM CHLORIDE
     Indication: MEDICATION DILUTION
     Dates: start: 20150624
  2. VANCOMYCIN HOSPIRA [Suspect]
     Active Substance: VANCOMYCIN
     Indication: ABSCESS
     Dates: start: 20150624
  3. STERILE WATER [Concomitant]
     Active Substance: WATER
     Indication: MEDICATION DILUTION
     Dates: start: 20150624

REACTIONS (3)
  - Antibiotic level above therapeutic [Recovered/Resolved]
  - Product measured potency issue [Recovered/Resolved]
  - Acute kidney injury [Recovered/Resolved]
